FAERS Safety Report 9736740 (Version 1)
Quarter: 2013Q4

REPORT INFORMATION
  Report Type: Spontaneous
  Country: IL (occurrence: IL)
  Receive Date: 20131206
  Receipt Date: 20131206
  Transmission Date: 20140711
  Serious: Yes (Other)
  Sender: FDA-Public Use
  Company Number: PHHY2013IL141547

PATIENT
  Age: 60 Year
  Sex: Female

DRUGS (2)
  1. TASIGNA [Suspect]
     Indication: CHRONIC MYELOID LEUKAEMIA
     Dosage: 400 MG, BID
     Route: 048
     Dates: start: 20081221
  2. TASIGNA [Suspect]
     Dosage: 400 MG, DAILY
     Route: 048

REACTIONS (2)
  - Electrocardiogram QT prolonged [Unknown]
  - Dizziness [Unknown]
